FAERS Safety Report 21675760 (Version 3)
Quarter: 2022Q4

REPORT INFORMATION
  Report Type: Spontaneous
  Country: DE (occurrence: DE)
  Receive Date: 20221202
  Receipt Date: 20221220
  Transmission Date: 20230112
  Serious: Yes (Other)
  Sender: FDA-Public Use
  Company Number: DE-BAUSCHBL-2022BNL002143

PATIENT
  Sex: Female

DRUGS (5)
  1. OFLOXACIN [Suspect]
     Active Substance: OFLOXACIN
     Indication: Product used for unknown indication
     Dosage: APPLIED THE EYE DROPS 2-3 TIMES A DAY
     Route: 047
     Dates: start: 20221101, end: 20221109
  2. DICLOFENAC [Concomitant]
     Active Substance: DICLOFENAC
     Indication: Product used for unknown indication
     Dosage: UNK, Q12H
     Dates: end: 20221102
  3. PROMETHAZINE [Concomitant]
     Active Substance: PROMETHAZINE HYDROCHLORIDE
     Indication: Product used for unknown indication
     Dosage: UNK
  4. AMOXICILLIN [Concomitant]
     Active Substance: AMOXICILLIN
     Indication: Lyme disease
     Dosage: UNK, Q12H
     Dates: end: 20221102
  5. HYLO GEL [Concomitant]
     Indication: Dry eye

REACTIONS (3)
  - Tendon pain [Not Recovered/Not Resolved]
  - Instillation site inflammation [Not Recovered/Not Resolved]
  - Instillation site irritation [Not Recovered/Not Resolved]

NARRATIVE: CASE EVENT DATE: 20221101
